FAERS Safety Report 8530875-6 (Version None)
Quarter: 2012Q3

REPORT INFORMATION
  Report Type: 
  Country: None (occurrence: None)
  Receive Date: 20120723
  Receipt Date: 20120711
  Transmission Date: 20120928
  Serious: Yes (Hospitalization)
  Sender: FDA-Public Use
  Company Number: JP-009507513-1207JPN007359

PATIENT

DRUGS (15)
  1. REBETOL [Suspect]
     Indication: HEPATITIS C
     Route: 048
     Dates: start: 20120510, end: 20120531
  2. ATELEC [Concomitant]
     Indication: HYPERTENSION
     Route: 048
  3. OLMESARTAN MEDOXOMIL [Concomitant]
     Indication: HYPERTENSION
     Route: 048
  4. FAMOTIDINE [Concomitant]
     Indication: PROPHYLAXIS
     Route: 048
  5. METFORMIN HCL [Concomitant]
     Indication: DIABETES MELLITUS
     Route: 048
  6. REBETOL [Suspect]
     Route: 048
     Dates: start: 20120615
  7. TELAPREVIR [Suspect]
     Indication: HEPATITIS C
     Route: 048
     Dates: start: 20120510, end: 20120531
  8. TELAPREVIR [Suspect]
     Route: 048
     Dates: start: 20120615
  9. JANUVIA [Concomitant]
     Route: 048
  10. REBETOL [Suspect]
     Route: 048
     Dates: start: 20120601, end: 20120614
  11. PEG-INTRON [Suspect]
     Dosage: 1.03MCG/KG/WEEK
     Route: 058
     Dates: start: 20120601
  12. ALOSENN (SENNA) [Concomitant]
     Indication: CONSTIPATION
     Route: 048
  13. PEG-INTRON [Suspect]
     Indication: HEPATITIS C
     Dosage: 1.5MCG/KG/WEEK
     Route: 058
     Dates: start: 20120510, end: 20120531
  14. TELAPREVIR [Suspect]
     Route: 048
     Dates: start: 20120601, end: 20120614
  15. GLUBEN [Concomitant]
     Indication: DIABETES MELLITUS
     Route: 048

REACTIONS (2)
  - ANAEMIA [None]
  - DECREASED APPETITE [None]
